FAERS Safety Report 7240078-3 (Version None)
Quarter: 2011Q1

REPORT INFORMATION
  Report Type: 
  Country: None (occurrence: None)
  Receive Date: 20110119
  Receipt Date: 20110119
  Transmission Date: 20110831
  Serious: No
  Sender: FDA-Public Use
  Company Number: None

PATIENT

DRUGS (2)
  1. MUCINEX DM [Suspect]
     Indication: OROPHARYNGEAL PAIN
     Dosage: 2 TABLETS ONCE PO
     Route: 048
     Dates: start: 20110111, end: 20110112
  2. MUCINEX DM [Suspect]
     Indication: COUGH
     Dosage: 2 TABLETS ONCE PO
     Route: 048
     Dates: start: 20110111, end: 20110112

REACTIONS (6)
  - DIZZINESS [None]
  - FATIGUE [None]
  - DIARRHOEA [None]
  - INSOMNIA [None]
  - ABDOMINAL PAIN UPPER [None]
  - FEELING ABNORMAL [None]
